FAERS Safety Report 4451178-5 (Version None)
Quarter: 2004Q3

REPORT INFORMATION
  Report Type: 
  Country: None (occurrence: None)
  Receive Date: 20040915
  Receipt Date: 20040915
  Transmission Date: 20050211
  Serious: No
  Sender: FDA-Public Use
  Company Number: None

PATIENT
  Age: 21 Year
  Sex: Male
  Weight: 97 kg

DRUGS (2)
  1. 6-MERCAPTOPURINE 50 MG (GENERIC) [Suspect]
     Indication: ACUTE MYELOID LEUKAEMIA
     Dosage: 3 TABS PO QD
     Route: 048
     Dates: start: 20040814
  2. PURINETHOL [Suspect]
     Dosage: 3 TABS PO QD
     Route: 048

REACTIONS (2)
  - DIZZINESS [None]
  - NAUSEA [None]
